FAERS Safety Report 9752373 (Version 1)
Quarter: 2013Q4

REPORT INFORMATION
  Report Type: Spontaneous
  Country: GB (occurrence: None)
  Receive Date: 20131211
  Receipt Date: 20131211
  Transmission Date: 20140711
  Serious: Yes (Hospitalization)
  Sender: FDA-Public Use
  Company Number: AUR-APL-2013-10136

PATIENT
  Age: 65 Year
  Sex: Male
  Weight: 78.95 kg

DRUGS (9)
  1. PIOGLITAZONE [Suspect]
     Indication: DIABETES MELLITUS
     Route: 048
     Dates: start: 20130215, end: 20130606
  2. ASPIRIN [Concomitant]
  3. BETAHISTINE [Concomitant]
  4. CINNARIZINE [Concomitant]
  5. GLICLAZIDE [Concomitant]
  6. LOSARTAN [Concomitant]
  7. METFORMIN (METFORMIN) [Concomitant]
  8. SILDENAFIL [Concomitant]
  9. SIMVASTATIN [Concomitant]

REACTIONS (2)
  - Dizziness [None]
  - Left ventricular hypertrophy [None]
